FAERS Safety Report 13992485 (Version 1)
Quarter: 2017Q3

REPORT INFORMATION
  Report Type: Spontaneous
  Country: US (occurrence: US)
  Receive Date: 20170920
  Receipt Date: 20170920
  Transmission Date: 20171128
  Serious: No
  Sender: FDA-Public Use
  Company Number: US-RECKITT BENCKISER HEALTHCARE INT LIMITED-RB-90914-2017

PATIENT
  Age: 55 Year
  Sex: Male

DRUGS (3)
  1. MUCINEX MAXIMUM STRENGTH [Suspect]
     Active Substance: GUAIFENESIN
     Dosage: UNK (PATIENT TOOK 2 TABLETS AT 1 PM, AND TOOK ANOTHER AT OTHER TIME)
     Route: 065
     Dates: start: 20170125
  2. MUCINEX MAXIMUM STRENGTH [Suspect]
     Active Substance: GUAIFENESIN
     Indication: VIRAL UPPER RESPIRATORY TRACT INFECTION
     Dosage: 1200 MG, BID
     Route: 065
     Dates: start: 20170121
  3. CODEINE [Concomitant]
     Active Substance: CODEINE
     Indication: COUGH
     Dosage: UNK
     Route: 065
     Dates: start: 20170125

REACTIONS (5)
  - Panic attack [Unknown]
  - Anxiety [Unknown]
  - Dyspnoea [Unknown]
  - Overdose [Unknown]
  - Palpitations [Unknown]

NARRATIVE: CASE EVENT DATE: 201701
